FAERS Safety Report 13058276 (Version 2)
Quarter: 2019Q1

REPORT INFORMATION
  Report Type: Spontaneous
  Country: CN (occurrence: CN)
  Receive Date: 20161223
  Receipt Date: 20190114
  Transmission Date: 20190417
  Serious: Yes (Disabling, Other)
  Sender: FDA-Public Use
  Company Number: CN-JNJFOC-20161209939

PATIENT
  Age: 1 Year
  Sex: Female
  Weight: 10 kg

DRUGS (1)
  1. TYLENOL [Suspect]
     Active Substance: ACETAMINOPHEN
     Indication: PYREXIA
     Dosage: WHEN NECESSARY
     Route: 048
     Dates: start: 20161008, end: 20161010

REACTIONS (1)
  - White blood cell count decreased [Recovering/Resolving]

NARRATIVE: CASE EVENT DATE: 20161010
